FAERS Safety Report 4349518-0 (Version None)
Quarter: 2004Q2

REPORT INFORMATION
  Report Type: 
  Country: None (occurrence: None)
  Receive Date: 20040426
  Receipt Date: 20040412
  Transmission Date: 20050107
  Serious: Yes (Hospitalization)
  Sender: FDA-Public Use
  Company Number: US070254

PATIENT
  Age: 62 Year
  Sex: Male
  Weight: 78.5 kg

DRUGS (6)
  1. ARANESP [Suspect]
     Indication: ANAEMIA OF MALIGNANT DISEASE
     Dosage: 400MCG, 1 IN 2 WEEKS, SC
     Route: 058
     Dates: start: 20030909, end: 20031208
  2. EPOGEN [Suspect]
     Indication: ANAEMIA OF MALIGNANT DISEASE
     Dosage: 60000, 1 IN 1 WEEKS, SC
     Route: 058
     Dates: start: 20031222
  3. DOXORUBICIN HCL [Concomitant]
  4. DEXAMETHASONE [Concomitant]
  5. ZOLEDRONIC ACID [Concomitant]
  6. IMMUNE GLOBULIN INTRAVENOUS (HUMAN) [Concomitant]

REACTIONS (2)
  - BONE MARROW DEPRESSION [None]
  - DRUG INEFFECTIVE [None]
